FAERS Safety Report 5487328-1 (Version None)
Quarter: 2007Q4

REPORT INFORMATION
  Report Type: 
  Country: None (occurrence: None)
  Receive Date: 20071015
  Receipt Date: 20071003
  Transmission Date: 20080405
  Serious: Yes (Death)
  Sender: FDA-Public Use
  Company Number: 2007JP004598

PATIENT
  Age: 60 Year
  Sex: Male

DRUGS (5)
  1. PROGRAF [Suspect]
     Indication: CORD BLOOD TRANSPLANT THERAPY
     Dosage: 0.03 MG/KG, IV NOS
     Route: 042
  2. CIPROFLOXACIN (CIPROFLOXACIN) FORMULATION UNKNOWN [Concomitant]
  3. ACYCLOVIR (ACICLOVIR) FORMULATION UNKNOWN [Concomitant]
  4. ITRACONAZOLE (ITRACONAZOLE) FORMULATION UNKNOWN [Concomitant]
  5. CEFEPIME (CEFEPIME) FORMULATION UNKNOWN [Concomitant]

REACTIONS (8)
  - BONE MARROW FAILURE [None]
  - GENERAL PHYSICAL HEALTH DETERIORATION [None]
  - HYPOVOLAEMIC SHOCK [None]
  - PLATELET COUNT DECREASED [None]
  - PLEURAL EFFUSION [None]
  - PULMONARY ALVEOLAR HAEMORRHAGE [None]
  - PULMONARY CONGESTION [None]
  - RESPIRATORY FAILURE [None]
